FAERS Safety Report 8396208-3 (Version None)
Quarter: 2012Q2

REPORT INFORMATION
  Report Type: 
  Country: None (occurrence: None)
  Receive Date: 20120530
  Receipt Date: 20120522
  Transmission Date: 20120825
  Serious: Yes (Other)
  Sender: FDA-Public Use
  Company Number: ES-GLAXOSMITHKLINE-B0804026A

PATIENT
  Age: 60 Year
  Sex: Female

DRUGS (2)
  1. PROMACTA [Suspect]
     Dosage: 75MG PER DAY
     Route: 048
     Dates: start: 20120401, end: 20120510
  2. PROMACTA [Suspect]
     Indication: IDIOPATHIC THROMBOCYTOPENIC PURPURA
     Dosage: 50MG PER DAY
     Route: 048
     Dates: start: 20120301

REACTIONS (4)
  - HAEMORRHAGE [None]
  - LEUKOCYTOSIS [None]
  - NASOPHARYNGITIS [None]
  - PLATELET COUNT INCREASED [None]
